FAERS Safety Report 4645365-0 (Version None)
Quarter: 2005Q2

REPORT INFORMATION
  Report Type: 
  Country: None (occurrence: None)
  Receive Date: 20050425
  Receipt Date: 20050412
  Transmission Date: 20051028
  Serious: Yes (Hospitalization, Other)
  Sender: FDA-Public Use
  Company Number: 2005057533

PATIENT
  Age: 78 Year
  Sex: Female

DRUGS (2)
  1. CELEBREX [Suspect]
     Indication: ARTHRALGIA
     Dosage: 200 MG (200 MG, 1 IN 1 D), ORAL
     Route: 048
     Dates: start: 20050101, end: 20050101
  2. ANTI-DIABETICS (ANTI-DIABETICS) [Concomitant]

REACTIONS (4)
  - BLOOD GLUCOSE INCREASED [None]
  - KIDNEY INFECTION [None]
  - PEPTIC ULCER [None]
  - URINE ABNORMALITY [None]
